FAERS Safety Report 18535527 (Version 1)
Quarter: 2020Q4

REPORT INFORMATION
  Report Type: Report from Study
  Country: DE (occurrence: DE)
  Receive Date: 20201123
  Receipt Date: 20201123
  Transmission Date: 20210114
  Serious: Yes (Death, Hospitalization)
  Sender: FDA-Public Use
  Company Number: DE-MYLANLABS-2020M1096124

PATIENT
  Age: 69 Year
  Sex: Male

DRUGS (7)
  1. VORICONAZOLE. [Suspect]
     Active Substance: VORICONAZOLE
     Indication: PULMONARY MUCORMYCOSIS
     Route: 065
  2. ISAVUCONAZOLE [Suspect]
     Active Substance: ISAVUCONAZOLE
     Indication: PULMONARY MUCORMYCOSIS
     Route: 065
  3. RUXOLITINIB [Concomitant]
     Active Substance: RUXOLITINIB
     Dosage: 20 MILLIGRAM, BID,
     Route: 065
  4. HYDROXYUREA. [Suspect]
     Active Substance: HYDROXYUREA
     Indication: CHRONIC MYELOID LEUKAEMIA
     Route: 065
  5. AMPHOTERICIN B. [Suspect]
     Active Substance: AMPHOTERICIN B
     Indication: PULMONARY MUCORMYCOSIS
     Route: 065
  6. RUXOLITINIB [Concomitant]
     Active Substance: RUXOLITINIB
     Indication: CHRONIC MYELOID LEUKAEMIA
     Dosage: 10 MILLIGRAM, BID
     Route: 065
  7. MERCAPTOPURINE. [Concomitant]
     Active Substance: MERCAPTOPURINE
     Indication: CHRONIC MYELOID LEUKAEMIA
     Route: 065

REACTIONS (1)
  - Drug ineffective [Fatal]
